FAERS Safety Report 14997165 (Version 1)
Quarter: 2018Q2

REPORT INFORMATION
  Report Type: Spontaneous
  Country: US (occurrence: US)
  Receive Date: 20180611
  Receipt Date: 20180611
  Transmission Date: 20180711
  Serious: No
  Sender: FDA-Public Use
  Company Number: US-ENDO PHARMACEUTICALS INC-2018-022731

PATIENT
  Sex: Female

DRUGS (1)
  1. NUBAIN [Suspect]
     Active Substance: NALBUPHINE HYDROCHLORIDE
     Indication: LABOUR PAIN
     Dosage: UNK UNK, UNKNOWN
     Route: 064

REACTIONS (2)
  - Drug screen positive [Unknown]
  - Foetal exposure during pregnancy [Unknown]
